FAERS Safety Report 4775428-0 (Version None)
Quarter: 2005Q3

REPORT INFORMATION
  Report Type: 
  Country: None (occurrence: None)
  Receive Date: 20050921
  Receipt Date: 20050921
  Transmission Date: 20060218
  Serious: Yes (Hospitalization)
  Sender: FDA-Public Use
  Company Number: None

PATIENT
  Age: 18 Year
  Sex: Female
  Weight: 44.5 kg

DRUGS (1)
  1. KETEK [Suspect]
     Dosage: 400 MG 1 TIME PO
     Route: 048
     Dates: start: 20050804, end: 20050804

REACTIONS (4)
  - APHASIA [None]
  - MYDRIASIS [None]
  - TACHYCARDIA [None]
  - VISUAL DISTURBANCE [None]
